FAERS Safety Report 6162582-1 (Version None)
Quarter: 2009Q2

REPORT INFORMATION
  Report Type: 
  Country: None (occurrence: None)
  Receive Date: 20090421
  Receipt Date: 20071128
  Transmission Date: 20091009
  Serious: No
  Sender: FDA-Public Use
  Company Number: US-ASTRAZENECA-2005UW12785

PATIENT
  Age: 59 Year
  Sex: Female
  Weight: 62.6 kg

DRUGS (9)
  1. ARIMIDEX [Suspect]
     Indication: BREAST CANCER
     Route: 048
     Dates: start: 20050119
  2. LEVOWYL [Concomitant]
  3. ACETYLSALICYLIC ACID SRT [Concomitant]
  4. CALCIUM [Concomitant]
  5. VITAMINS [Concomitant]
  6. VITAMIN B-12 [Concomitant]
  7. ZOCOR [Concomitant]
  8. CRESTOR [Concomitant]
  9. ZETIA [Concomitant]

REACTIONS (5)
  - LIBIDO DISORDER [None]
  - MOOD SWINGS [None]
  - URINARY INCONTINENCE [None]
  - VAGINAL DISCHARGE [None]
  - VULVOVAGINAL DRYNESS [None]
